FAERS Safety Report 5318142-5 (Version None)
Quarter: 2007Q1

REPORT INFORMATION
  Report Type: 
  Country: None (occurrence: None)
  Receive Date: 20070201
  Receipt Date: 20060613
  Transmission Date: 20070707
  Serious: Yes (Hospitalization)
  Sender: FDA-Public Use
  Company Number: WAES 0606USA02346

PATIENT
  Age: 45 Year
  Sex: Female

DRUGS (1)
  1. PRIMAXIN [Suspect]
     Indication: WOUND INFECTION
     Dosage: 500 MG/Q6H/IV
     Route: 042
     Dates: start: 20060601

REACTIONS (1)
  - CONVULSION [None]
